FAERS Safety Report 11856246 (Version 1)
Quarter: 2015Q4

REPORT INFORMATION
  Report Type: Other
  Country: US (occurrence: US)
  Receive Date: 20151221
  Receipt Date: 20151221
  Transmission Date: 20160305
  Serious: Yes (Hospitalization)
  Sender: FDA-Public Use
  Company Number: US-COL_21605_2015

PATIENT
  Age: 40 Year
  Sex: Female

DRUGS (2)
  1. COLGATE TOTAL LASTING WHITE POLAR FRESHMINT [Suspect]
     Active Substance: SODIUM FLUORIDE
     Indication: DENTAL DISORDER PROPHYLAXIS
     Dosage: DID NOT USE A LOT/ONCE/
     Route: 048
     Dates: start: 2015, end: 2015
  2. COLGATE TOTAL LASTING WHITE POLAR FRESHMINT [Suspect]
     Active Substance: SODIUM FLUORIDE
     Dosage: DID NOT USE A LOT/ONCE/
     Route: 048
     Dates: start: 2015, end: 2015

REACTIONS (3)
  - Hypersensitivity [Recovered/Resolved]
  - Dyspnoea [Recovered/Resolved]
  - Swollen tongue [Recovered/Resolved]

NARRATIVE: CASE EVENT DATE: 2015
